FAERS Safety Report 8534837 (Version 9)
Quarter: 2014Q1

REPORT INFORMATION
  Report Type: Report from Study
  Country: SE (occurrence: SE)
  Receive Date: 20120427
  Receipt Date: 20140214
  Transmission Date: 20141002
  Serious: Yes (Hospitalization)
  Sender: FDA-Public Use
  Company Number: SE-B.I. PHARMACEUTICALS,INC./RIDGEFIELD-2012-RD-00195EU

PATIENT
  Age: 85 Year
  Sex: Male
  Weight: 75.4 kg

DRUGS (1)
  1. BI 1356 [Suspect]
     Indication: TYPE 2 DIABETES MELLITUS
     Route: 048
     Dates: start: 20110303, end: 20120221

REACTIONS (3)
  - Hydronephrosis [Recovered/Resolved]
  - Urinary tract infection [Recovered/Resolved]
  - Perirenal haematoma [Recovered/Resolved]
